FAERS Safety Report 9294772 (Version 2)
Quarter: 2013Q2

REPORT INFORMATION
  Report Type: Spontaneous
  Country: US (occurrence: US)
  Receive Date: 20130517
  Receipt Date: 20130625
  Transmission Date: 20140414
  Serious: No
  Sender: FDA-Public Use
  Company Number: US-009507513-1305USA009003

PATIENT
  Age: 72 Year
  Sex: Male
  Weight: 96.6 kg

DRUGS (2)
  1. EMEND [Suspect]
     Indication: PROPHYLAXIS OF NAUSEA AND VOMITING
     Dosage: 150MG/INFUSION
     Route: 042
     Dates: start: 20130313, end: 20130313
  2. EMEND [Suspect]
     Dosage: 150 UNK, UNK
     Route: 042
     Dates: start: 20130403, end: 20130403

REACTIONS (14)
  - Dyspnoea [Recovered/Resolved]
  - Flushing [Recovered/Resolved]
  - Dyspnoea [Recovering/Resolving]
  - Flushing [Recovering/Resolving]
  - Feeling hot [Recovered/Resolved]
  - Nausea [Recovered/Resolved]
  - Sensation of foreign body [Recovered/Resolved]
  - Erythema [Recovered/Resolved]
  - Hyperhidrosis [Recovered/Resolved]
  - Hyperhidrosis [Recovered/Resolved]
  - Erythema [Recovered/Resolved]
  - Sensation of foreign body [Recovered/Resolved]
  - Nausea [Recovered/Resolved]
  - Feeling hot [Recovered/Resolved]
